FAERS Safety Report 11025665 (Version 1)
Quarter: 2015Q2

REPORT INFORMATION
  Report Type: Spontaneous
  Country: US (occurrence: None)
  Receive Date: 20150413
  Receipt Date: 20150413
  Transmission Date: 20150821
  Serious: No
  Sender: FDA-Public Use
  Company Number: None

PATIENT
  Age: 77 Year
  Sex: Female
  Weight: 81.65 kg

DRUGS (3)
  1. THYROID [Concomitant]
     Active Substance: LEVOTHYROXINE\LIOTHYRONINE
  2. LEVOTHYROXINE SODIUM. [Suspect]
     Active Substance: LEVOTHYROXINE SODIUM
     Indication: HYPOTHYROIDISM
     Dosage: 0.025 MG, 1 PILL, ONCE A DAY, BY MOUTH
     Route: 048
  3. ADVIL [Concomitant]
     Active Substance: IBUPROFEN

REACTIONS (15)
  - Urticaria [None]
  - Diarrhoea [None]
  - Product substitution issue [None]
  - Pruritus [None]
  - Weight decreased [None]
  - Pain [None]
  - Vomiting [None]
  - Nausea [None]
  - Rash [None]
  - Abdominal pain upper [None]
  - Disturbance in sexual arousal [None]
  - Anal pruritus [None]
  - Abdominal pain [None]
  - Chest pain [None]
  - Heart rate increased [None]
